FAERS Safety Report 5535705-2 (Version None)
Quarter: 2007Q4

REPORT INFORMATION
  Report Type: 
  Country: None (occurrence: None)
  Receive Date: 20071206
  Receipt Date: 20070222
  Transmission Date: 20080405
  Serious: Yes (Hospitalization)
  Sender: FDA-Public Use
  Company Number: US-AMGEN-STX210040

PATIENT
  Sex: Male
  Weight: 75 kg

DRUGS (7)
  1. ENBREL [Suspect]
     Indication: PSORIASIS
     Route: 058
     Dates: start: 20050512
  2. LORATADINE [Concomitant]
     Route: 048
     Dates: start: 20050810
  3. METOPROLOL TARTRATE [Concomitant]
     Route: 048
     Dates: start: 20060112
  4. CLOTRIMAZOLE [Concomitant]
     Route: 061
     Dates: start: 20050511
  5. HYDROCODONE BITARTRATE + ACETAMINOPHEN [Concomitant]
     Dates: start: 20060220
  6. NAPROXEN [Concomitant]
     Dates: start: 20060220
  7. PREDNISONE TAB [Concomitant]
     Dates: start: 20060220, end: 20060225

REACTIONS (2)
  - BACTERIAL INFECTION [None]
  - CELLULITIS [None]
